FAERS Safety Report 5512612-2 (Version None)
Quarter: 2007Q4

REPORT INFORMATION
  Report Type: 
  Country: None (occurrence: None)
  Receive Date: 20071108
  Receipt Date: 20071108
  Transmission Date: 20080405
  Serious: Yes (Disabling)
  Sender: FDA-Public Use
  Company Number: None

PATIENT
  Sex: Female
  Weight: 51.7101 kg

DRUGS (6)
  1. LIPITOR [Suspect]
     Indication: HYPERLIPIDAEMIA
     Dosage: 20MG 1 TAB DAILY PO
     Route: 048
     Dates: start: 20030116, end: 20071029
  2. STARLIX [Concomitant]
  3. LISINOPRIL [Concomitant]
  4. LEVOTHYROXINE TABLET [Concomitant]
  5. METFORMIN HCL TABLET [Concomitant]
  6. NATEGLINIDE [Concomitant]

REACTIONS (3)
  - ILL-DEFINED DISORDER [None]
  - LYME DISEASE [None]
  - MYALGIA [None]
